FAERS Safety Report 9003812 (Version 1)
Quarter: 2013Q1

REPORT INFORMATION
  Report Type: Spontaneous
  Country: US (occurrence: US)
  Receive Date: 20130108
  Receipt Date: 20130108
  Transmission Date: 20140127
  Serious: No
  Sender: FDA-Public Use
  Company Number: US-GLAXOSMITHKLINE-A0984793A

PATIENT
  Age: 72 Year
  Sex: Female

DRUGS (21)
  1. LOVAZA [Suspect]
     Indication: BLOOD CHOLESTEROL
     Dosage: 2G TWICE PER DAY
     Route: 048
     Dates: start: 20120607
  2. ACIDOPHILUS [Concomitant]
  3. ASACOL [Concomitant]
  4. ALLOPURINOL [Concomitant]
  5. VITAMIN B [Concomitant]
  6. BENADRYL [Concomitant]
  7. BENICAR [Concomitant]
  8. BETA CAROTENE [Concomitant]
  9. FIORINAL [Concomitant]
  10. CALCIUM [Concomitant]
  11. FERROUS GLUCONATE [Concomitant]
  12. FOLIC ACID [Concomitant]
  13. HCTZ [Concomitant]
  14. LUTEIN [Concomitant]
  15. MULTIVITAMIN [Concomitant]
  16. ZEGERID [Concomitant]
  17. POTASSIUM [Concomitant]
  18. SYNTHROID [Concomitant]
  19. VIVELLE-DOT [Concomitant]
  20. UVA URSI [Concomitant]
  21. CHROMIUM PICOLINATE [Concomitant]

REACTIONS (2)
  - Pruritus [Not Recovered/Not Resolved]
  - Rash [Unknown]
